FAERS Safety Report 12811516 (Version 1)
Quarter: 2016Q4

REPORT INFORMATION
  Report Type: Spontaneous
  Country: US (occurrence: US)
  Receive Date: 20161005
  Receipt Date: 20161005
  Transmission Date: 20170207
  Serious: No
  Sender: FDA-Public Use
  Company Number: US-AMGEN-USASP2016097256

PATIENT
  Sex: Female

DRUGS (11)
  1. PLAQUENIL [Concomitant]
     Active Substance: HYDROXYCHLOROQUINE SULFATE
  2. VALSARTAN. [Concomitant]
     Active Substance: VALSARTAN
  3. FISH OIL [Concomitant]
     Active Substance: FISH OIL
  4. METHOTREXATE. [Concomitant]
     Active Substance: METHOTREXATE
  5. FOLIC ACID. [Concomitant]
     Active Substance: FOLIC ACID
  6. GABAPENTIN. [Concomitant]
     Active Substance: GABAPENTIN
  7. CALCIUM [Concomitant]
     Active Substance: CALCIUM
  8. PROLIA [Suspect]
     Active Substance: DENOSUMAB
     Indication: OSTEOPOROSIS
     Dosage: UNK, UNK
     Route: 065
     Dates: start: 201507
  9. MELOXICAM. [Concomitant]
     Active Substance: MELOXICAM
  10. SULFASALAZINE. [Concomitant]
     Active Substance: SULFASALAZINE
  11. SIMVASTATIN. [Concomitant]
     Active Substance: SIMVASTATIN

REACTIONS (4)
  - Sciatica [Unknown]
  - Nerve compression [Unknown]
  - Intervertebral disc degeneration [Unknown]
  - Spinal pain [Unknown]
